FAERS Safety Report 21512319 (Version 2)
Quarter: 2023Q1

REPORT INFORMATION
  Report Type: Spontaneous
  Country: US (occurrence: None)
  Receive Date: 20221027
  Receipt Date: 20230127
  Transmission Date: 20230417
  Serious: No
  Sender: FDA-Public Use
  Company Number: US-Ultragenyx Pharmaceutical Inc.-US-UGNX-22-00371

PATIENT
  Sex: Female
  Weight: 21.2 kg

DRUGS (4)
  1. DOJOLVI [Suspect]
     Active Substance: TRIHEPTANOIN
     Indication: Pyruvate carboxylase deficiency
     Dosage: MAINTENANCE 6ML, 8 TIMES DAILY, VIA G-TUBE
     Dates: start: 20220527
  2. DOJOLVI [Suspect]
     Active Substance: TRIHEPTANOIN
     Dosage: 6ML, 8 TIMES DAILY, VIA G-TUBE
     Dates: start: 20220601
  3. DOJOLVI [Suspect]
     Active Substance: TRIHEPTANOIN
     Dosage: 3 ML, EIGHT TIMES DAILY VIA G-TUBE
  4. DOJOLVI [Suspect]
     Active Substance: TRIHEPTANOIN
     Dosage: 6ML FOUR TIMES DAILY, VIA G-TUBE
     Dates: start: 20220531

REACTIONS (2)
  - Diarrhoea [Unknown]
  - Off label use [Unknown]
